FAERS Safety Report 5675881-4 (Version None)
Quarter: 2008Q1

REPORT INFORMATION
  Report Type: 
  Country: None (occurrence: None)
  Receive Date: 20080321
  Receipt Date: 20080312
  Transmission Date: 20080703
  Serious: Yes (Other)
  Sender: FDA-Public Use
  Company Number: A0673097A

PATIENT
  Sex: Female

DRUGS (1)
  1. PAXIL [Suspect]
     Indication: DEPRESSION

REACTIONS (11)
  - ADVERSE EVENT [None]
  - CRYING [None]
  - CYANOSIS [None]
  - DRUG EXPOSURE DURING PREGNANCY [None]
  - DYSPNOEA [None]
  - FEEDING DISORDER NEONATAL [None]
  - FLOPPY INFANT [None]
  - ILL-DEFINED DISORDER [None]
  - IRRITABILITY [None]
  - TREMOR NEONATAL [None]
  - VOMITING NEONATAL [None]
